FAERS Safety Report 21199417 (Version 1)
Quarter: 2022Q3

REPORT INFORMATION
  Report Type: Spontaneous
  Country: US (occurrence: US)
  Receive Date: 20220811
  Receipt Date: 20220811
  Transmission Date: 20221027
  Serious: No
  Sender: FDA-Public Use
  Company Number: US-SA-SAC20220810001289

PATIENT
  Age: 40 Year
  Sex: Female

DRUGS (5)
  1. DUPIXENT [Suspect]
     Active Substance: DUPILUMAB
     Indication: Asthma
     Dosage: 1 DF, QOW
     Route: 058
  2. FIORICET [Concomitant]
     Active Substance: ACETAMINOPHEN\BUTALBITAL\CAFFEINE
  3. ONDANSETRON [Concomitant]
     Active Substance: ONDANSETRON
  4. SUMATRIPTAN [Concomitant]
     Active Substance: SUMATRIPTAN
  5. PHENERGAN AND CHLORAL HYDRATE [Concomitant]

REACTIONS (1)
  - Illness [Unknown]
